FAERS Safety Report 16757231 (Version 1)
Quarter: 2019Q3

REPORT INFORMATION
  Report Type: Spontaneous
  Country: GB (occurrence: GB)
  Receive Date: 20190829
  Receipt Date: 20190829
  Transmission Date: 20191005
  Serious: Yes (Disabling, Other)
  Sender: FDA-Public Use
  Company Number: GB-TEVA-2019-GB-1098937

PATIENT
  Age: 74 Year
  Sex: Female
  Weight: 63.5 kg

DRUGS (10)
  1. OMEPRAZOLE. [Concomitant]
     Active Substance: OMEPRAZOLE
  2. CARMELLOSE [Concomitant]
  3. PREDNISOLONE. [Concomitant]
     Active Substance: PREDNISOLONE
     Indication: MYALGIA
  4. IBUPROFEN. [Concomitant]
     Active Substance: IBUPROFEN
  5. PARACETAMOL [Concomitant]
     Active Substance: ACETAMINOPHEN
  6. ADCAL [Concomitant]
  7. ALENDRONIC ACID [Concomitant]
     Active Substance: ALENDRONIC ACID
  8. CODEINE [Concomitant]
     Active Substance: CODEINE
  9. ATORVASTATIN [Concomitant]
     Active Substance: ATORVASTATIN
  10. ALENDRONIC ACID [Suspect]
     Active Substance: ALENDRONIC ACID
     Indication: OSTEOPOROSIS PROPHYLAXIS
     Dosage: 70 MILLIGRAM
     Route: 048
     Dates: start: 20190625, end: 20190626

REACTIONS (1)
  - Musculoskeletal stiffness [Not Recovered/Not Resolved]

NARRATIVE: CASE EVENT DATE: 20190625
